FAERS Safety Report 17884101 (Version 1)
Quarter: 2020Q2

REPORT INFORMATION
  Report Type: Spontaneous
  Country: SE (occurrence: SE)
  Receive Date: 20200611
  Receipt Date: 20200611
  Transmission Date: 20200714
  Serious: Yes (Other)
  Sender: FDA-Public Use
  Company Number: SE-ACCORD-185088

PATIENT
  Sex: Female

DRUGS (4)
  1. OXASCAND [Concomitant]
     Active Substance: OXAZEPAM
     Dosage: VB
  2. ALVEDON [Concomitant]
     Active Substance: ACETAMINOPHEN
     Dosage: VB
  3. HEMINEVRIN [Concomitant]
     Active Substance: CLOMETHIAZOLE
  4. DONEPEZIL/DONEPEZIL HYDROCHLORIDE [Suspect]
     Active Substance: DONEPEZIL HYDROCHLORIDE
     Indication: DEMENTIA
     Dates: end: 20200528

REACTIONS (1)
  - Sleep disorder [Not Recovered/Not Resolved]
